FAERS Safety Report 18146369 (Version 3)
Quarter: 2020Q3

REPORT INFORMATION
  Report Type: Spontaneous
  Country: US (occurrence: US)
  Receive Date: 20200813
  Receipt Date: 20200908
  Transmission Date: 20201103
  Serious: Yes (Death, Other)
  Sender: FDA-Public Use
  Company Number: US-GILEAD-2020-0489902

PATIENT
  Age: 59 Year
  Sex: Male
  Weight: 114.7 kg

DRUGS (18)
  1. NOREPINEPHRINE. [Concomitant]
     Active Substance: NOREPINEPHRINE
     Dosage: UNK
     Dates: start: 20200717, end: 20200727
  2. ESMOLOL [Concomitant]
     Active Substance: ESMOLOL HYDROCHLORIDE
  3. EPOPROSTENOL. [Concomitant]
     Active Substance: EPOPROSTENOL
     Dosage: UNK
     Dates: start: 20200718, end: 20200727
  4. MIDAZOLAM. [Concomitant]
     Active Substance: MIDAZOLAM
     Dosage: UNK
     Dates: start: 20200717, end: 20200727
  5. VASOPRESSIN. [Concomitant]
     Active Substance: VASOPRESSIN
  6. REMDESIVIR. [Suspect]
     Active Substance: REMDESIVIR
     Dosage: 100 MG, QD
     Route: 042
     Dates: start: 20200714, end: 20200716
  7. DEXAMETHASONE. [Concomitant]
     Active Substance: DEXAMETHASONE
     Indication: COVID-19
     Dosage: 6 MG
     Route: 042
     Dates: start: 20200713, end: 20200725
  8. FAMOTIDINE. [Concomitant]
     Active Substance: FAMOTIDINE
     Dosage: 10 MG
     Route: 042
     Dates: start: 20200713, end: 20200726
  9. CALCIUM CHLORIDE. [Concomitant]
     Active Substance: CALCIUM CHLORIDE
     Dosage: 1 G
     Route: 042
     Dates: start: 20200717, end: 20200717
  10. CISATRACURIUM. [Concomitant]
     Active Substance: CISATRACURIUM
     Dosage: UNK
     Dates: start: 20200716, end: 20200727
  11. REMDESIVIR. [Suspect]
     Active Substance: REMDESIVIR
     Indication: COVID-19
     Dosage: 200 MG, ONCE
     Route: 042
     Dates: start: 20200713, end: 20200713
  12. INSULIN [Concomitant]
     Active Substance: INSULIN NOS
     Indication: DIABETES MELLITUS MANAGEMENT
     Dosage: SLIDING SCALE
     Route: 058
     Dates: start: 20200713, end: 20200726
  13. EPINEPHRINE. [Concomitant]
     Active Substance: EPINEPHRINE
  14. MEROPENEM. [Concomitant]
     Active Substance: MEROPENEM
     Dosage: UNK
     Dates: start: 20200726
  15. LANTUS [Concomitant]
     Active Substance: INSULIN GLARGINE
     Dosage: UNK
     Dates: start: 20200713
  16. TOCILIZUMAB. [Concomitant]
     Active Substance: TOCILIZUMAB
     Indication: INTERLEUKIN LEVEL INCREASED
     Dosage: 400 MG
     Route: 042
     Dates: start: 20200717, end: 20200717
  17. PHENYLEPHRINE [Concomitant]
     Active Substance: PHENYLEPHRINE HYDROCHLORIDE
  18. FENTANYL. [Concomitant]
     Active Substance: FENTANYL
     Dosage: UNK
     Dates: start: 20200717, end: 20200727

REACTIONS (13)
  - Alanine aminotransferase increased [Recovered/Resolved]
  - Pulmonary embolism [Not Recovered/Not Resolved]
  - Septic shock [Fatal]
  - Aspartate aminotransferase increased [Recovered/Resolved]
  - Ischaemic hepatitis [Not Recovered/Not Resolved]
  - Oxygen saturation decreased [Not Recovered/Not Resolved]
  - Klebsiella bacteraemia [Unknown]
  - Blood creatinine increased [Not Recovered/Not Resolved]
  - Hypotension [Not Recovered/Not Resolved]
  - Pulmonary hypertension [Not Recovered/Not Resolved]
  - Fibrin D dimer increased [Not Recovered/Not Resolved]
  - Atrial thrombosis [Not Recovered/Not Resolved]
  - Acinetobacter bacteraemia [Unknown]

NARRATIVE: CASE EVENT DATE: 20200717
